FAERS Safety Report 13761620 (Version 1)
Quarter: 2017Q3

REPORT INFORMATION
  Report Type: Spontaneous
  Country: DE (occurrence: DE)
  Receive Date: 20170718
  Receipt Date: 20170718
  Transmission Date: 20171127
  Serious: Yes (Other)
  Sender: FDA-Public Use
  Company Number: DE-MYLANLABS-2017M1042788

PATIENT

DRUGS (1)
  1. FONDAPARINUX [Suspect]
     Active Substance: FONDAPARINUX
     Indication: DEEP VEIN THROMBOSIS
     Dosage: 1 DF, UNK (2.5 MG/0.5 ML)
     Route: 058
     Dates: start: 20170615

REACTIONS (5)
  - Blood pressure decreased [Unknown]
  - Enteritis [Unknown]
  - Colitis ulcerative [Unknown]
  - Asthenia [Recovering/Resolving]
  - Palpitations [Unknown]

NARRATIVE: CASE EVENT DATE: 20170615
